FAERS Safety Report 23084532 (Version 1)
Quarter: 2023Q4

REPORT INFORMATION
  Report Type: Spontaneous
  Country: DE (occurrence: DE)
  Receive Date: 20231019
  Receipt Date: 20231019
  Transmission Date: 20240109
  Serious: Yes (Hospitalization, Congenital Anomaly, Other)
  Sender: FDA-Public Use
  Company Number: None

PATIENT
  Age: 1 Day
  Sex: Male
  Weight: 3 kg

DRUGS (3)
  1. VENLAFAXINE [Suspect]
     Active Substance: VENLAFAXINE HYDROCHLORIDE
     Indication: Product used for unknown indication
     Dosage: MOTHER DOSE: 75 [MG/D] PER DAY FROM 01/09/2022 TO 28/05/2023 FOR 269 DAYS.
     Route: 064
  2. FOLIC ACID [Concomitant]
     Active Substance: FOLIC ACID
     Indication: Product used for unknown indication
     Dosage: UNKNOWN WHEN STARTED, UNKNOWN UNTIL WHEN
     Route: 064
  3. ACETAMINOPHEN [Concomitant]
     Active Substance: ACETAMINOPHEN
     Indication: Product used for unknown indication
     Dosage: MOTHER DOSE: UNKNOWN ?FROM 10/10/2022 TO  10/10/2022
     Route: 064

REACTIONS (3)
  - Respiratory disorder neonatal [Recovered/Resolved]
  - Infantile haemangioma [Unknown]
  - Foetal exposure during pregnancy [Unknown]

NARRATIVE: CASE EVENT DATE: 20230501
